FAERS Safety Report 8759506 (Version 6)
Quarter: 2014Q1

REPORT INFORMATION
  Report Type: Spontaneous
  Country: US (occurrence: US)
  Receive Date: 20120829
  Receipt Date: 20140325
  Transmission Date: 20141002
  Serious: Yes (Life-Threatening, Hospitalization)
  Sender: FDA-Public Use
  Company Number: US-B.I. PHARMACEUTICALS,INC./RIDGEFIELD-2012-BP-20874BP

PATIENT
  Age: 85 Year
  Sex: Male
  Weight: 102.06 kg

DRUGS (13)
  1. PRADAXA [Suspect]
     Indication: CEREBROVASCULAR ACCIDENT PROPHYLAXIS
     Dosage: 300 MG
     Route: 065
     Dates: start: 20110913, end: 20110923
  2. PRADAXA [Suspect]
     Indication: THROMBOSIS PROPHYLAXIS
  3. PRADAXA [Suspect]
     Indication: ATRIAL FIBRILLATION
  4. ALPRAZOLAM [Concomitant]
     Route: 065
     Dates: start: 2007, end: 2012
  5. KLOR-CON [Concomitant]
     Route: 065
     Dates: start: 2009, end: 2012
  6. PROMETHAZINE [Concomitant]
     Route: 065
     Dates: start: 2009, end: 2012
  7. FUROSEMIDE [Concomitant]
     Dosage: 80 MG
     Route: 048
  8. FUROSEMIDE [Concomitant]
     Dosage: 25 MG
     Route: 065
  9. ASPIRIN [Concomitant]
     Dosage: 81 MG
     Route: 048
     Dates: end: 20110923
  10. FAMOTIDINE [Concomitant]
     Dosage: 40 MG
     Route: 048
  11. FERROUS SULFATE [Concomitant]
     Dosage: 650 MG
     Route: 048
  12. JANUVIA [Concomitant]
     Indication: TYPE 2 DIABETES MELLITUS
     Dosage: 100 MG
     Route: 048
  13. HYDROCODONE [Concomitant]
     Indication: BACK PAIN
     Route: 048

REACTIONS (4)
  - Upper gastrointestinal haemorrhage [Unknown]
  - Haemorrhagic anaemia [Unknown]
  - Coagulopathy [Unknown]
  - Respiratory distress [Unknown]
